FAERS Safety Report 7966019-9 (Version None)
Quarter: 2011Q4

REPORT INFORMATION
  Report Type: 
  Country: None (occurrence: None)
  Receive Date: 20111208
  Receipt Date: 20111130
  Transmission Date: 20120403
  Serious: Yes (Other)
  Sender: FDA-Public Use
  Company Number: GB-B.I. PHARMACEUTICALS,INC./RIDGEFIELD-2011-UK-01308UK

PATIENT
  Age: 74 Year
  Sex: Male
  Weight: 79 kg

DRUGS (12)
  1. OPTIVE [Concomitant]
     Dates: start: 20111005
  2. CANDESARTAN CILEXETIL [Concomitant]
     Dates: start: 20111005, end: 20111102
  3. ALFACALCIDOL [Concomitant]
     Dates: start: 20111005
  4. AMOXICILLIN AND CLAVULANATE POTASSIUM [Concomitant]
     Dates: start: 20111109, end: 20111116
  5. DIGOXIN [Concomitant]
     Dates: start: 20110726, end: 20110920
  6. FUROSEMIDE [Concomitant]
     Dates: start: 20111005
  7. PNEUMOCOCCAL POLYSACCHARIDE [Concomitant]
     Dates: start: 20111005, end: 20111005
  8. CARVEDILOL [Concomitant]
     Dates: start: 20110726
  9. REPAGLINIDE [Concomitant]
     Dates: start: 20110816, end: 20111102
  10. TRAJENTA [Suspect]
     Dates: start: 20111103
  11. GLICLAZIDE [Concomitant]
     Dates: start: 20111103
  12. METFORMIN HCL [Concomitant]
     Dates: start: 20110816, end: 20110913

REACTIONS (1)
  - SIMPLE PARTIAL SEIZURES [None]
